FAERS Safety Report 11274779 (Version 5)
Quarter: 2015Q3

REPORT INFORMATION
  Report Type: Report from Study
  Country: FR (occurrence: FR)
  Receive Date: 20150716
  Receipt Date: 20150820
  Transmission Date: 20151125
  Serious: Yes (Hospitalization)
  Sender: FDA-Public Use
  Company Number: FR-AMGEN-FRACT2015070184

PATIENT
  Age: 73 Year
  Sex: Female
  Weight: 78 kg

DRUGS (38)
  1. LEDERFOLINE [Concomitant]
     Active Substance: LEUCOVORIN CALCIUM
     Dosage: 25 MG, UNK
     Route: 048
     Dates: start: 201403
  2. LANTUS [Concomitant]
     Active Substance: INSULIN GLARGINE
     Dosage: 25 IU, UNK
     Route: 058
     Dates: start: 201403
  3. OXYCONTIN [Concomitant]
     Active Substance: OXYCODONE HYDROCHLORIDE
     Dosage: 30 MG, UNK
     Route: 048
     Dates: start: 201506
  4. PERFALGAN [Concomitant]
     Active Substance: ACETAMINOPHEN
     Dosage: 1 G, UNK
     Route: 042
     Dates: start: 20141126, end: 20150710
  5. RIBAVIRINE [Concomitant]
     Active Substance: RIBAVIRIN
     Dosage: 600 MG, UNK
     Route: 048
     Dates: start: 20141128, end: 20141212
  6. METHOTREXATE [Concomitant]
     Active Substance: METHOTREXATE
     Dosage: 15 MG, UNK
     Route: 037
     Dates: start: 20141118, end: 20150203
  7. METHYLPREDNISOLONE. [Concomitant]
     Active Substance: METHYLPREDNISOLONE
     Dosage: 40 MG, UNK
     Route: 037
     Dates: start: 20141118, end: 20150203
  8. TUSSIDANE [Concomitant]
     Active Substance: DEXTROMETHORPHAN HYDROBROMIDE
     Dosage: 2 UNK, UNK
     Route: 048
     Dates: start: 20150227, end: 20150303
  9. BLINATUMOMAB [Suspect]
     Active Substance: BLINATUMOMAB
     Indication: ACUTE LYMPHOCYTIC LEUKAEMIA
     Dosage: 28 MUG, UNK
     Route: 041
     Dates: start: 20141125
  10. DEXAMETHASONE. [Concomitant]
     Active Substance: DEXAMETHASONE
     Dosage: 8 TO 20 MG, UNK
     Dates: start: 20141125, end: 20150623
  11. AUGMENTIN [Concomitant]
     Active Substance: AMOXICILLIN\CLAVULANATE POTASSIUM
     Dosage: 1 G, UNK
     Route: 042
     Dates: start: 20150226, end: 20150710
  12. MEROPENEM. [Concomitant]
     Active Substance: MEROPENEM
     Dosage: 1 G, UNK
     Route: 042
     Dates: start: 20141129, end: 20141219
  13. TUSSIPAX                           /01342601/ [Concomitant]
     Dosage: 1 UNK, UNK
     Route: 048
     Dates: start: 20150226, end: 20150304
  14. IMOVANE [Concomitant]
     Active Substance: ZOPICLONE
     Dosage: 3.75 TO 7.5 MG, UNK
     Route: 048
     Dates: start: 20141212
  15. ZELITREX [Concomitant]
     Active Substance: VALACYCLOVIR HYDROCHLORIDE
     Dosage: 500 MG, UNK
     Route: 048
  16. PENTACARINAT [Concomitant]
     Active Substance: PENTAMIDINE ISETHIONATE
     Dosage: 1 UNK, UNK
     Route: 045
     Dates: start: 20141125, end: 20150623
  17. NOVORAPID [Concomitant]
     Active Substance: INSULIN ASPART
     Dosage: 3 IU, UNK
     Route: 058
     Dates: start: 201403
  18. BUDESONIDE. [Concomitant]
     Active Substance: BUDESONIDE
     Dosage: 1 UNK, UNK
     Route: 048
     Dates: start: 20150703, end: 20150710
  19. ATARAX [Concomitant]
     Active Substance: HYDROXYZINE\HYDROXYZINE HYDROCHLORIDE
     Dosage: 25 TO 50 MG, UNK
     Route: 048
     Dates: start: 20141202, end: 20141212
  20. TAZOCILLINE [Concomitant]
     Active Substance: PIPERACILLIN SODIUM\TAZOBACTAM SODIUM
     Dosage: 4 G, UNK
     Route: 042
     Dates: start: 20141124, end: 20141128
  21. VANCOMYCINE [Concomitant]
     Active Substance: VANCOMYCIN
     Dosage: 1 G, UNK
     Route: 042
     Dates: start: 20141126, end: 20141212
  22. POLARAMINE [Concomitant]
     Active Substance: DEXCHLORPHENIRAMINE MALEATE
     Dosage: 1 UNK, UNK
     Route: 042
     Dates: start: 20141126, end: 20141126
  23. COAPROVEL [Concomitant]
     Active Substance: HYDROCHLOROTHIAZIDE\IRBESARTAN
     Dosage: 12.5 MG, UNK
     Route: 048
     Dates: start: 1979
  24. INSULIN [Concomitant]
     Active Substance: INSULIN NOS
     Dosage: 20 IU, UNK
     Route: 058
     Dates: start: 20150623, end: 20150623
  25. DOLIPRANE [Concomitant]
     Active Substance: ACETAMINOPHEN
     Dosage: 1 G, UNK
     Route: 048
     Dates: start: 20150623
  26. AMBISOME [Concomitant]
     Active Substance: AMPHOTERICIN B
     Dosage: 50 MG, UNK
     Route: 042
     Dates: start: 20141128, end: 20141216
  27. INEXIUM                            /01479302/ [Concomitant]
     Active Substance: ESOMEPRAZOLE MAGNESIUM
     Dosage: 40 MG, UNK
     Route: 048
  28. OXYNORMORO [Concomitant]
     Active Substance: OXYCODONE
     Dosage: 5 TO 10 MG, UNK
     Route: 048
     Dates: start: 20150106
  29. MORPHINE [Concomitant]
     Active Substance: MORPHINE
     Dosage: 60 MG, UNK
     Route: 048
     Dates: start: 201506
  30. CYTARABINE. [Concomitant]
     Active Substance: CYTARABINE
     Dosage: 40 MG, UNK
     Route: 037
     Dates: start: 20141118, end: 20150203
  31. CONTRAMAL [Concomitant]
     Active Substance: TRAMADOL HYDROCHLORIDE
     Dosage: 100 MG, UNK
     Route: 048
     Dates: start: 20150215, end: 20150218
  32. AERIUS [Concomitant]
     Active Substance: DESLORATADINE
     Dosage: 5 MG, UNK
     Route: 048
     Dates: start: 20141218
  33. DUROGESIC [Concomitant]
     Active Substance: FENTANYL
     Dosage: 25 MUG, UNK
     Route: 062
     Dates: start: 20150219
  34. IDARAC [Concomitant]
     Active Substance: FLOCTAFENINE
     Dosage: 400 MG AND 1 UNK, UNK
     Route: 048
     Dates: start: 20141128
  35. AMOXICILLINE                       /00249602/ [Concomitant]
     Active Substance: AMOXICILLIN
     Dosage: 1 G, UNK
     Route: 048
     Dates: start: 20150703, end: 20150710
  36. EXOMUC [Concomitant]
     Active Substance: ACETYLCYSTEINE
     Dosage: 200 MG, UNK
     Route: 048
     Dates: start: 20150703, end: 20150710
  37. LEVOTHYROX [Concomitant]
     Active Substance: LEVOTHYROXINE
     Dosage: 50 MUG, UNK
     Route: 048
     Dates: start: 2011
  38. ACUPAN [Concomitant]
     Active Substance: NEFOPAM HYDROCHLORIDE
     Dosage: 20 MG AND 1 UNK, UNK
     Route: 048
     Dates: start: 20141207, end: 20150630

REACTIONS (2)
  - Haematemesis [Recovered/Resolved]
  - Discomfort [Not Recovered/Not Resolved]

NARRATIVE: CASE EVENT DATE: 20150710
